FAERS Safety Report 16449178 (Version 1)
Quarter: 2019Q2

REPORT INFORMATION
  Report Type: Spontaneous
  Country: FR (occurrence: FR)
  Receive Date: 20190619
  Receipt Date: 20190619
  Transmission Date: 20190711
  Serious: Yes (Hospitalization)
  Sender: FDA-Public Use
  Company Number: FR-TEVA-2019-FR-1064633

PATIENT
  Age: 90 Year
  Sex: Male

DRUGS (12)
  1. PERINDOPRIL [Suspect]
     Active Substance: PERINDOPRIL
     Indication: HYPERTENSION
     Route: 048
     Dates: start: 20190328, end: 20190430
  2. PARACETAMOL [Concomitant]
     Active Substance: ACETAMINOPHEN
     Indication: PAIN
     Route: 048
     Dates: start: 20180411
  3. BROMAZEPAM [Concomitant]
     Active Substance: BROMAZEPAM
     Route: 048
     Dates: start: 201901
  4. DORZOLAMIDE BASE [Concomitant]
     Indication: GLAUCOMA
     Route: 047
  5. LOVENOX [Concomitant]
     Active Substance: ENOXAPARIN SODIUM
     Indication: PROPHYLAXIS
     Route: 058
     Dates: start: 20190325, end: 20190511
  6. MONOPROST 50 MICROGRAMMES/ML, COLLYRE EN SOLUTION EN R?CIPIENT UNIDOSE [Concomitant]
     Active Substance: LATANOPROST
     Indication: GLAUCOMA
     Route: 047
  7. METOCLOPRAMIDE. [Concomitant]
     Active Substance: METOCLOPRAMIDE
     Indication: NAUSEA
     Route: 042
     Dates: start: 20190405, end: 20190424
  8. LEVOTHYROX 75 MICROGRAMMES, COMPRIM? S?CABLE [Concomitant]
     Active Substance: LEVOTHYROXINE SODIUM
     Indication: HYPOTHYROIDISM
     Route: 048
  9. DICLOFENAC [Concomitant]
     Active Substance: DICLOFENAC
     Route: 003
     Dates: start: 20190411, end: 20190411
  10. GAVISCON, COMPRIM? [Concomitant]
     Route: 048
  11. PANTOPRAZOLE [Suspect]
     Active Substance: PANTOPRAZOLE
     Indication: PROPHYLAXIS
     Route: 048
     Dates: start: 20190327, end: 20190430
  12. MOVICOL [Concomitant]
     Active Substance: POLYETHYLENE GLYCOL 3350\POTASSIUM CHLORIDE\SODIUM BICARBONATE\SODIUM CHLORIDE
     Route: 048
     Dates: start: 20190327

REACTIONS (2)
  - Anaemia [Recovering/Resolving]
  - Neutropenia [Recovering/Resolving]

NARRATIVE: CASE EVENT DATE: 20190430
